FAERS Safety Report 6850055-X (Version None)
Quarter: 2010Q3

REPORT INFORMATION
  Report Type: 
  Country: None (occurrence: None)
  Receive Date: 20100716
  Receipt Date: 20071013
  Transmission Date: 20110219
  Serious: No
  Sender: FDA-Public Use
  Company Number: US-PFIZER INC-2007085881

PATIENT
  Sex: Male
  Weight: 185 kg

DRUGS (4)
  1. CHANTIX [Suspect]
     Indication: SMOKING CESSATION THERAPY
     Dates: start: 20071008
  2. NEURONTIN [Concomitant]
  3. TYLENOL [Concomitant]
  4. NEXIUM [Concomitant]

REACTIONS (1)
  - HEADACHE [None]
